FAERS Safety Report 6006759-4 (Version None)
Quarter: 2008Q4

REPORT INFORMATION
  Report Type: 
  Country: None (occurrence: None)
  Receive Date: 20081215
  Receipt Date: 20081204
  Transmission Date: 20090506
  Serious: Yes (Death, Hospitalization)
  Sender: FDA-Public Use
  Company Number: 2008SP024999

PATIENT
  Age: 72 Year
  Sex: Female

DRUGS (12)
  1. DIAFUSOR (GLYCERYL TRINITRATE) [Suspect]
     Indication: DRUG USE FOR UNKNOWN INDICATION
     Dosage: 10 MG; QD;
     Dates: start: 19951011
  2. PERINDOPRIL ERBUMINE [Suspect]
     Indication: CARDIAC FAILURE
     Dosage: 2 MG; QD;
     Dates: start: 19951011
  3. ENBREL [Suspect]
     Indication: RHEUMATOID ARTHRITIS
     Dosage: 25 MG; QW;
     Dates: start: 20010611, end: 20040821
  4. ASPIRIN [Suspect]
     Indication: CARDIAC FAILURE
     Dosage: 160 MG; QD;
     Dates: start: 19951011
  5. AMLODIPINE BESYLATE [Suspect]
     Indication: DRUG USE FOR UNKNOWN INDICATION
  6. ZOCOR [Suspect]
     Indication: DRUG USE FOR UNKNOWN INDICATION
  7. SOLU-MEDROL [Suspect]
     Indication: RHEUMATOID ARTHRITIS
     Dosage: 60 MG; QD; IV
     Route: 042
     Dates: start: 20040822, end: 20040830
  8. VIOXX [Suspect]
     Indication: RHEUMATOID ARTHRITIS
     Dosage: 25 MG; QD;
     Dates: start: 20040825
  9. ISOPTIN [Concomitant]
  10. PLAQUENIL [Concomitant]
  11. ALLOCHRYSINE [Concomitant]
  12. METHOTREXATE [Concomitant]

REACTIONS (6)
  - ARTHRITIS [None]
  - COLITIS [None]
  - GENERAL PHYSICAL HEALTH DETERIORATION [None]
  - INTESTINAL PERFORATION [None]
  - PERITONITIS [None]
  - PNEUMOPERITONEUM [None]
